FAERS Safety Report 11314757 (Version 1)
Quarter: 2015Q3

REPORT INFORMATION
  Report Type: Spontaneous
  Country: US (occurrence: US)
  Receive Date: 20150727
  Receipt Date: 20150727
  Transmission Date: 20151125
  Serious: No
  Sender: FDA-Public Use
  Company Number: US-PFIZER INC-2015237968

PATIENT
  Age: 41 Year
  Sex: Male
  Weight: 86 kg

DRUGS (4)
  1. EMBEDA [Suspect]
     Active Substance: MORPHINE SULFATE\NALTREXONE HYDROCHLORIDE
     Indication: BACK PAIN
     Dosage: 30.1 MG, 2X/DAY
     Dates: start: 201504
  2. VALIUM [Concomitant]
     Active Substance: DIAZEPAM
     Dosage: UNK
  3. EMBEDA [Suspect]
     Active Substance: MORPHINE SULFATE\NALTREXONE HYDROCHLORIDE
     Indication: SPINAL FUSION SURGERY
     Dosage: 60.2 MG, 2X/DAY
     Dates: start: 2015
  4. SOMA [Concomitant]
     Active Substance: CARISOPRODOL
     Indication: MUSCLE RELAXANT THERAPY
     Dosage: UNK

REACTIONS (1)
  - Drug ineffective [Unknown]

NARRATIVE: CASE EVENT DATE: 2015
